FAERS Safety Report 6132668-6 (Version None)
Quarter: 2009Q1

REPORT INFORMATION
  Report Type: 
  Country: None (occurrence: None)
  Receive Date: 20090324
  Receipt Date: 20090310
  Transmission Date: 20090719
  Serious: Yes (Other)
  Sender: FDA-Public Use
  Company Number: 430015K09USA

PATIENT
  Age: 54 Year
  Sex: Female
  Weight: 77 kg

DRUGS (3)
  1. NOVANTRONE [Suspect]
     Indication: MULTIPLE SCLEROSIS
     Dates: start: 20080601, end: 20080901
  2. CRESTOR [Concomitant]
  3. LEXAPRO [Concomitant]

REACTIONS (1)
  - EJECTION FRACTION DECREASED [None]
